FAERS Safety Report 6551044-5 (Version None)
Quarter: 2010Q1

REPORT INFORMATION
  Report Type: 
  Country: None (occurrence: None)
  Receive Date: 20100122
  Receipt Date: 20100122
  Transmission Date: 20100710
  Serious: No
  Sender: FDA-Public Use
  Company Number: None

PATIENT
  Age: 37 Year
  Sex: Male
  Weight: 131.5431 kg

DRUGS (1)
  1. ASTEPRO [Suspect]

REACTIONS (3)
  - ANOSMIA [None]
  - DYSGEUSIA [None]
  - PRODUCT QUALITY ISSUE [None]
